FAERS Safety Report 10147130 (Version 2)
Quarter: 2014Q2

REPORT INFORMATION
  Report Type: Report from Study
  Country: CA (occurrence: CA)
  Receive Date: 20140501
  Receipt Date: 20140521
  Transmission Date: 20141212
  Serious: Yes (Hospitalization, Other)
  Sender: FDA-Public Use
  Company Number: PHHY2014CA053021

PATIENT
  Age: 69 Year
  Sex: Female

DRUGS (7)
  1. ACLASTA [Suspect]
     Indication: OSTEOPOROSIS
     Dosage: 5 MG, UNK
     Route: 042
     Dates: start: 20120221
  2. ACLASTA [Suspect]
     Dosage: 5 MG, UNK
     Route: 042
     Dates: start: 20130225
  3. ORENCIA [Concomitant]
     Dosage: PER MONTH
     Route: 041
  4. CALCIUM [Concomitant]
     Dosage: 500 MG, QD
  5. DEXILANT [Concomitant]
     Dosage: 60 MG, DAILY
  6. RAMIPRIL [Concomitant]
     Dosage: 2.5 MG, DAILY
  7. APO ATORVASTATIN [Concomitant]
     Dosage: 40 MG, AT NIGHT

REACTIONS (1)
  - Hip fracture [Recovering/Resolving]
